FAERS Safety Report 9773572 (Version 1)
Quarter: 2013Q4

REPORT INFORMATION
  Report Type: Spontaneous
  Country: TR (occurrence: None)
  Receive Date: 20131217
  Receipt Date: 20131217
  Transmission Date: 20140711
  Serious: Yes (Hospitalization)
  Sender: FDA-Public Use
  Company Number: B0952518A

PATIENT
  Age: 43 Year
  Sex: Female

DRUGS (2)
  1. BUPROPION HYDROCHLORIDE [Suspect]
     Indication: MAJOR DEPRESSION
  2. FLUOXETINE [Concomitant]

REACTIONS (5)
  - Libido increased [None]
  - Malaise [None]
  - Anhedonia [None]
  - Asthenia [None]
  - Decreased interest [None]
